FAERS Safety Report 18341333 (Version 2)
Quarter: 2021Q3

REPORT INFORMATION
  Report Type: Report from Study
  Country: AR (occurrence: AR)
  Receive Date: 20201003
  Receipt Date: 20210922
  Transmission Date: 20211014
  Serious: Yes (Other)
  Sender: FDA-Public Use
  Company Number: NVSC2020AR266335

PATIENT
  Age: 51 Year
  Sex: Female

DRUGS (1)
  1. COSENTYX [Suspect]
     Active Substance: SECUKINUMAB
     Indication: PSORIATIC ARTHROPATHY
     Dosage: 300 MG, QMO
     Route: 058
     Dates: start: 20180528

REACTIONS (8)
  - Drug ineffective [Unknown]
  - Pain [Unknown]
  - Chest discomfort [Unknown]
  - Arthralgia [Unknown]
  - Immunodeficiency [Unknown]
  - COVID-19 [Unknown]
  - Nasopharyngitis [Unknown]
  - Pain in extremity [Unknown]

NARRATIVE: CASE EVENT DATE: 20210801
